FAERS Safety Report 9512385 (Version 1)
Quarter: 2013Q3

REPORT INFORMATION
  Report Type: Report from Study
  Country: JP (occurrence: JP)
  Receive Date: 20130910
  Receipt Date: 20130910
  Transmission Date: 20140515
  Serious: Yes (Death, Hospitalization)
  Sender: FDA-Public Use
  Company Number: JP-GENZYME-THYM-1004127

PATIENT
  Age: 58 Year
  Sex: Female
  Weight: 46 kg

DRUGS (23)
  1. THYMOGLOBULIN [Suspect]
     Indication: ACUTE GRAFT VERSUS HOST DISEASE
     Dosage: 25 MG, UNK (OVER 6 HOURS)
     Route: 065
     Dates: start: 20120511, end: 20120511
  2. THYMOGLOBULIN [Suspect]
     Dosage: 25 MG, UNK (OVER 6 HOURS)
     Route: 065
     Dates: start: 20120515, end: 20120515
  3. THYMOGLOBULIN [Suspect]
     Dosage: 25 MG, UNK (OVER 6 HOURS)
     Route: 065
     Dates: start: 20120605, end: 20120605
  4. THYMOGLOBULIN [Suspect]
     Dosage: 25 MG, UNK (OVER 6 HOURS)
     Route: 065
     Dates: start: 20120612, end: 20120612
  5. THYMOGLOBULIN [Suspect]
     Dosage: 25 MG, UNK (OVER 6 HOURS)
     Route: 065
     Dates: start: 20120618, end: 20120618
  6. THYMOGLOBULIN [Suspect]
     Dosage: 50 MG, UNK (OVER 6 HOURS)
     Route: 065
     Dates: start: 20120625, end: 20120625
  7. FINIBAX [Concomitant]
     Indication: INFECTION PROPHYLAXIS
     Dosage: UNK
     Route: 065
     Dates: end: 20120727
  8. FUNGUARD [Concomitant]
     Indication: INFECTION PROPHYLAXIS
     Dosage: UNK
     Route: 065
     Dates: end: 20120720
  9. ZOVIRAX [Concomitant]
     Indication: INFECTION PROPHYLAXIS
     Dosage: UNK
     Route: 065
     Dates: end: 20120601
  10. VFEND [Concomitant]
     Indication: INFECTION PROPHYLAXIS
     Dosage: UNK
     Route: 065
     Dates: end: 20120601
  11. CRAVIT [Concomitant]
     Indication: INFECTION PROPHYLAXIS
     Dosage: UNK
     Route: 065
     Dates: end: 20120601
  12. IRBESARTAN [Concomitant]
     Indication: HYPERTENSION
     Dosage: UNK
     Route: 065
     Dates: end: 20120518
  13. AMLODIPINE [Concomitant]
     Indication: HYPERTENSION
     Dosage: UNK
     Route: 065
     Dates: end: 20120518
  14. METHYLPREDNISOLONE [Concomitant]
     Indication: PROPHYLAXIS AGAINST GRAFT VERSUS HOST DISEASE
     Dosage: UNK
     Route: 065
     Dates: end: 20120725
  15. METHYLPREDNISOLONE [Concomitant]
     Indication: ACUTE GRAFT VERSUS HOST DISEASE
  16. TACROLIMUS [Concomitant]
     Indication: PROPHYLAXIS AGAINST GRAFT VERSUS HOST DISEASE
     Dosage: UNK
     Route: 065
     Dates: end: 20120611
  17. BONALON [Concomitant]
     Indication: OSTEOPOROSIS PROPHYLAXIS
     Dosage: UNK
     Route: 065
     Dates: start: 20120511, end: 20120601
  18. MYCOPHENOLIC ACID [Concomitant]
     Indication: ACUTE GRAFT VERSUS HOST DISEASE
     Dosage: UNK
     Route: 065
     Dates: start: 20120517, end: 20120626
  19. CICLOSPORIN [Concomitant]
     Indication: PROPHYLAXIS AGAINST GRAFT VERSUS HOST DISEASE
     Dosage: UNK
     Route: 065
     Dates: start: 20120612, end: 20120725
  20. CICLOSPORIN [Concomitant]
     Indication: ACUTE GRAFT VERSUS HOST DISEASE
  21. FOSCAVIR [Concomitant]
     Indication: INFECTION PROPHYLAXIS
     Dosage: UNK
     Route: 065
     Dates: start: 20120606, end: 20120727
  22. ZYVOX [Concomitant]
     Indication: INFECTION PROPHYLAXIS
     Dosage: UNK
     Route: 065
     Dates: start: 20120718, end: 20120727
  23. ACYCLOVIR [Concomitant]
     Indication: INFECTION PROPHYLAXIS
     Dosage: UNK
     Route: 065
     Dates: start: 20120723, end: 20120727

REACTIONS (3)
  - Acute graft versus host disease in liver [Fatal]
  - Inflammation [Fatal]
  - Acute graft versus host disease in intestine [Fatal]
